FAERS Safety Report 26145283 (Version 1)
Quarter: 2025Q4

REPORT INFORMATION
  Report Type: Spontaneous
  Country: US (occurrence: None)
  Receive Date: 20251210
  Receipt Date: 20251210
  Transmission Date: 20260118
  Serious: Yes (Hospitalization)
  Sender: FDA-CTU
  Company Number: None

PATIENT
  Age: 55 Year
  Sex: Male
  Weight: 216 kg

DRUGS (7)
  1. TENECTEPLASE [Suspect]
     Active Substance: TENECTEPLASE
     Indication: Cerebrovascular accident
     Dosage: OTHER FREQUENCY : ONCE;
     Route: 040
     Dates: start: 20251208, end: 20251208
  2. NOREPINEPHRINE [Concomitant]
     Active Substance: NOREPINEPHRINE
     Dates: start: 20251208
  3. PHENYLEPHRINE [Concomitant]
     Active Substance: PHENYLEPHRINE
     Dates: start: 20251208
  4. SUCCINYLCHOLINE [Concomitant]
     Active Substance: SUCCINYLCHOLINE
     Dates: start: 20251208, end: 20251208
  5. FENTANYL [Concomitant]
     Active Substance: FENTANYL
     Dates: start: 20251208
  6. ROCURONIUM [Concomitant]
     Active Substance: ROCURONIUM BROMIDE
     Dates: start: 20251208, end: 20251208
  7. PROPOFOL [Concomitant]
     Active Substance: PROPOFOL
     Dates: start: 20251208

REACTIONS (2)
  - Subarachnoid haemorrhage [None]
  - Cerebral infarction [None]

NARRATIVE: CASE EVENT DATE: 20251209
